FAERS Safety Report 18580493 (Version 1)
Quarter: 2020Q4

REPORT INFORMATION
  Report Type: Report from Study
  Country: PR (occurrence: PR)
  Receive Date: 20201204
  Receipt Date: 20201204
  Transmission Date: 20210114
  Serious: Yes (Other)
  Sender: FDA-Public Use
  Company Number: PR-BAYER-2020-262829

PATIENT
  Age: 57 Year
  Sex: Female

DRUGS (1)
  1. ADEMPAS [Suspect]
     Active Substance: RIOCIGUAT
     Indication: PULMONARY ARTERIAL HYPERTENSION
     Dosage: 1.0 MG, TID
     Route: 048
     Dates: start: 202002

REACTIONS (4)
  - Vomiting [None]
  - Gastritis [None]
  - Dehydration [None]
  - Diarrhoea [None]

NARRATIVE: CASE EVENT DATE: 20201201
